FAERS Safety Report 23751280 (Version 1)
Quarter: 2024Q2

REPORT INFORMATION
  Report Type: Spontaneous
  Country: ES (occurrence: ES)
  Receive Date: 20240417
  Receipt Date: 20240417
  Transmission Date: 20240716
  Serious: Yes (Life-Threatening, Other)
  Sender: FDA-Public Use
  Company Number: ES-EMA-DD-20240319-7482831-114304

PATIENT
  Age: 58 Year
  Sex: Male

DRUGS (7)
  1. OXALIPLATIN [Suspect]
     Active Substance: OXALIPLATIN
     Indication: Rectal adenocarcinoma
     Dosage: RECEIVED 7 CHEMOTHERAPY CYCLES (OXALIPLATIN- CAPECITABINE), INFUSION
     Dates: end: 2015
  2. MONTELUKAST [Suspect]
     Active Substance: MONTELUKAST SODIUM
     Indication: Premedication
  3. DEXCHLORPHENIRAMINE MALEATE [Suspect]
     Active Substance: DEXCHLORPHENIRAMINE MALEATE
     Indication: Premedication
  4. OMALIZUMAB [Suspect]
     Active Substance: OMALIZUMAB
     Indication: Premedication
     Dosage: 300 MILLIGRAM
  5. SALICYLIC ACID [Suspect]
     Active Substance: SALICYLIC ACID
     Indication: Premedication
  6. RANITIDINE [Suspect]
     Active Substance: RANITIDINE
     Indication: Premedication
  7. CAPECITABINE [Concomitant]
     Active Substance: CAPECITABINE
     Indication: Rectal adenocarcinoma
     Dosage: RECEIVED 7 CHEMOTHERAPY CYCLES (OXALIPLATIN- CAPECITABINE).
     Dates: end: 2015

REACTIONS (7)
  - Bradycardia [Unknown]
  - Depressed level of consciousness [Unknown]
  - Dyspnoea [Unknown]
  - Pruritus [Unknown]
  - Oxygen saturation decreased [Unknown]
  - Hypersensitivity [Unknown]
  - Erythema [Unknown]

NARRATIVE: CASE EVENT DATE: 20150101
